FAERS Safety Report 16663505 (Version 1)
Quarter: 2019Q3

REPORT INFORMATION
  Report Type: Spontaneous
  Country: US (occurrence: US)
  Receive Date: 20190619
  Receipt Date: 20190619
  Transmission Date: 20191004
  Serious: Yes (Hospitalization)
  Sender: FDA-Public Use
  Company Number: None

PATIENT
  Age: 51 Year
  Sex: Female
  Weight: 63.5 kg

DRUGS (5)
  1. AIMOVIG [Suspect]
     Active Substance: ERENUMAB-AOOE
     Indication: MIGRAINE
     Dosage: ?          QUANTITY:70 MG MILLIGRAM(S);?
     Route: 058
     Dates: start: 20190322, end: 20190514
  2. BERRY BLEND JUICE PLUS [Concomitant]
  3. XANAX [Concomitant]
     Active Substance: ALPRAZOLAM
  4. CELEBREX [Concomitant]
     Active Substance: CELECOXIB
  5. NAPROXEN. [Concomitant]
     Active Substance: NAPROXEN

REACTIONS (4)
  - Gait disturbance [None]
  - Dysstasia [None]
  - Constipation [None]
  - Gastrointestinal pain [None]

NARRATIVE: CASE EVENT DATE: 20190530
